FAERS Safety Report 7764781-1 (Version None)
Quarter: 2011Q3

REPORT INFORMATION
  Report Type: 
  Country: None (occurrence: None)
  Receive Date: 20110921
  Receipt Date: 20110921
  Transmission Date: 20111222
  Serious: Yes (Hospitalization)
  Sender: FDA-Public Use
  Company Number: None

PATIENT
  Age: 39 Year
  Sex: Female
  Weight: 654.53 kg

DRUGS (1)
  1. LAPATINIB [Suspect]
     Indication: BREAST CANCER METASTATIC
     Dosage: 3000 MG
     Route: 048
     Dates: start: 20110528, end: 20110907

REACTIONS (6)
  - NAUSEA [None]
  - VOMITING [None]
  - METASTASES TO CENTRAL NERVOUS SYSTEM [None]
  - NUCLEAR MAGNETIC RESONANCE IMAGING BRAIN ABNORMAL [None]
  - DISEASE PROGRESSION [None]
  - HEADACHE [None]
